FAERS Safety Report 15265006 (Version 2)
Quarter: 2018Q3

REPORT INFORMATION
  Report Type: Report from Study
  Country: ES (occurrence: ES)
  Receive Date: 20180810
  Receipt Date: 20180905
  Transmission Date: 20181010
  Serious: Yes (Death, Hospitalization, Other)
  Sender: FDA-Public Use
  Company Number: ES-VELOXIS PHARMACEUTICALS, INC.-2018VELES1093

PATIENT
  Age: 55 Year
  Sex: Male
  Weight: 130 kg

DRUGS (6)
  1. ENVARSUS XR [Suspect]
     Active Substance: TACROLIMUS
     Dosage: 3.75 MG, QD
     Route: 048
     Dates: start: 20180525
  2. SIROLIMUS. [Concomitant]
     Active Substance: SIROLIMUS
     Indication: IMMUNOSUPPRESSANT DRUG THERAPY
     Dosage: 2.5 MG, QD
  3. ENVARSUS XR [Suspect]
     Active Substance: TACROLIMUS
     Dosage: 2 MG, QD
     Route: 048
     Dates: start: 20180517
  4. ENVARSUS XR [Suspect]
     Active Substance: TACROLIMUS
     Indication: IMMUNOSUPPRESSANT DRUG THERAPY
     Dosage: 2 MG, QD
     Route: 048
     Dates: start: 20180203, end: 20180529
  5. PREDNISONA [Concomitant]
     Active Substance: PREDNISONE
     Indication: IMMUNOSUPPRESSANT DRUG THERAPY
     Dosage: 20 MG, BID
  6. ENVARSUS XR [Suspect]
     Active Substance: TACROLIMUS
     Dosage: 2 MG, QD
     Route: 048
     Dates: start: 20180511

REACTIONS (2)
  - Toxicity to various agents [Not Recovered/Not Resolved]
  - Transplant rejection [Fatal]

NARRATIVE: CASE EVENT DATE: 20180516
